FAERS Safety Report 15064823 (Version 4)
Quarter: 2018Q4

REPORT INFORMATION
  Report Type: Spontaneous
  Country: US (occurrence: US)
  Receive Date: 20180626
  Receipt Date: 20181210
  Transmission Date: 20190204
  Serious: No
  Sender: FDA-Public Use
  Company Number: US-BIOGEN-2018BI00598458

PATIENT
  Sex: Female

DRUGS (3)
  1. TECFIDERA [Suspect]
     Active Substance: DIMETHYL FUMARATE
     Dosage: TAKE 1 CAPSULE BY?MOUTH TWICE A DAY
     Route: 048
  2. TECFIDERA [Suspect]
     Active Substance: DIMETHYL FUMARATE
     Dosage: MAINTENANCE DOSE
     Route: 048
  3. TECFIDERA [Suspect]
     Active Substance: DIMETHYL FUMARATE
     Indication: MULTIPLE SCLEROSIS
     Dosage: STARTING DOSE
     Route: 048

REACTIONS (14)
  - Decreased appetite [Unknown]
  - Gastrooesophageal reflux disease [Unknown]
  - Product dose omission [Unknown]
  - Dizziness [Unknown]
  - Skin exfoliation [Unknown]
  - Abdominal pain upper [Not Recovered/Not Resolved]
  - Flushing [Recovered/Resolved]
  - Diarrhoea [Not Recovered/Not Resolved]
  - Abdominal pain [Not Recovered/Not Resolved]
  - Dry skin [Unknown]
  - Constipation [Unknown]
  - Rheumatoid arthritis [Unknown]
  - Pruritus [Recovered/Resolved]
  - Arthralgia [Unknown]
